FAERS Safety Report 7845013-2 (Version None)
Quarter: 2011Q4

REPORT INFORMATION
  Report Type: 
  Country: None (occurrence: None)
  Receive Date: 20111025
  Receipt Date: 20111019
  Transmission Date: 20120403
  Serious: Yes (Life-Threatening, Hospitalization, Other)
  Sender: FDA-Public Use
  Company Number: US-PURDUE-USA-2011-0076470

PATIENT
  Sex: Male

DRUGS (2)
  1. COCAINE [Suspect]
     Indication: SUBSTANCE ABUSE
  2. BUTRANS [Suspect]
     Indication: SUBSTANCE ABUSE

REACTIONS (3)
  - CARDIO-RESPIRATORY ARREST [None]
  - INTENTIONAL DRUG MISUSE [None]
  - SUBSTANCE ABUSE [None]
